FAERS Safety Report 24284713 (Version 1)
Quarter: 2024Q3

REPORT INFORMATION
  Report Type: Spontaneous
  Country: US (occurrence: US)
  Receive Date: 20240905
  Receipt Date: 20240905
  Transmission Date: 20241017
  Serious: No
  Sender: AMGEN
  Company Number: US-AMGEN-USASP2024174096

PATIENT
  Age: 77 Year
  Sex: Female

DRUGS (4)
  1. REPATHA [Suspect]
     Active Substance: EVOLOCUMAB
     Indication: Product used for unknown indication
     Dosage: 140 MILLIGRAM, Q2WK
     Route: 065
     Dates: end: 2024
  2. REPATHA [Suspect]
     Active Substance: EVOLOCUMAB
     Dosage: 140 MILLIGRAM, Q2WK
     Route: 065
     Dates: start: 202407
  3. PETROLEUM JELLY [Concomitant]
     Active Substance: PETROLATUM
     Indication: Product used for unknown indication
     Route: 065
  4. CERAVE DEVELOPED WITH DERMATOLOGISTS ECZEMA RELIEF CREAMY [Concomitant]
     Active Substance: OATMEAL
     Indication: Eczema

REACTIONS (5)
  - Vision blurred [Not Recovered/Not Resolved]
  - Dysphagia [Recovering/Resolving]
  - Rash [Not Recovered/Not Resolved]
  - Arthralgia [Unknown]
  - Back pain [Unknown]

NARRATIVE: CASE EVENT DATE: 20240101
